FAERS Safety Report 9538464 (Version 1)
Quarter: 2013Q3

REPORT INFORMATION
  Report Type: Report from Study
  Country: US (occurrence: US)
  Receive Date: 20130920
  Receipt Date: 20130920
  Transmission Date: 20140515
  Serious: Yes (Hospitalization)
  Sender: FDA-Public Use
  Company Number: US-JNJFOC-20130907432

PATIENT
  Age: 57 Year
  Sex: Female
  Weight: 73.48 kg

DRUGS (6)
  1. REMICADE [Suspect]
     Indication: RHEUMATOID ARTHRITIS
     Route: 042
     Dates: start: 2013
  2. REMICADE [Suspect]
     Indication: RHEUMATOID ARTHRITIS
     Route: 042
     Dates: start: 2013
  3. REMICADE [Suspect]
     Indication: RHEUMATOID ARTHRITIS
     Route: 042
     Dates: start: 2012
  4. SERTRALINE [Concomitant]
     Indication: STRESS
     Route: 048
     Dates: start: 2010
  5. PREDNISONE [Concomitant]
     Indication: RHEUMATOID ARTHRITIS
     Route: 048
     Dates: start: 201210
  6. IBUPROFEN [Concomitant]
     Indication: HEADACHE
     Route: 065

REACTIONS (4)
  - Intracranial aneurysm [Recovered/Resolved]
  - Infection [Not Recovered/Not Resolved]
  - Brain oedema [Not Recovered/Not Resolved]
  - Hypertension [Recovered/Resolved]
